FAERS Safety Report 19074769 (Version 2)
Quarter: 2022Q1

REPORT INFORMATION
  Report Type: Spontaneous
  Country: US (occurrence: None)
  Receive Date: 20210330
  Receipt Date: 20220323
  Transmission Date: 20220423
  Serious: No
  Sender: FDA-Public Use
  Company Number: US-ROCHE-2603927

PATIENT
  Sex: Female

DRUGS (11)
  1. ERIVEDGE [Suspect]
     Active Substance: VISMODEGIB
     Indication: Congenital anomaly
     Dosage: 1 CAPSULE
     Route: 048
     Dates: start: 20150610
  2. MAGNESIUM [Concomitant]
     Active Substance: MAGNESIUM
  3. CLONAZEPAM [Concomitant]
     Active Substance: CLONAZEPAM
  4. PRAMIPEXOLE [Concomitant]
     Active Substance: PRAMIPEXOLE
  5. AMOXICILLIN [Concomitant]
     Active Substance: AMOXICILLIN
  6. CLOBETASOL PROPIONATE [Concomitant]
     Active Substance: CLOBETASOL PROPIONATE
  7. LEVOTHYROXINE [Concomitant]
     Active Substance: LEVOTHYROXINE
  8. OMEPRAZOLE [Concomitant]
     Active Substance: OMEPRAZOLE
  9. SIMVASTATIN [Concomitant]
     Active Substance: SIMVASTATIN
  10. NEOMYCIN;POLYMYXIN B [Concomitant]
  11. CIPROFLOXACIN [Concomitant]
     Active Substance: CIPROFLOXACIN

REACTIONS (3)
  - Off label use [Unknown]
  - Muscle spasms [Not Recovered/Not Resolved]
  - Ageusia [Not Recovered/Not Resolved]
